FAERS Safety Report 24338523 (Version 4)
Quarter: 2024Q4

REPORT INFORMATION
  Report Type: Spontaneous
  Country: JP (occurrence: JP)
  Receive Date: 20240919
  Receipt Date: 20241118
  Transmission Date: 20250114
  Serious: Yes (Other)
  Sender: BRISTOL-MYERS SQUIBB COMPANY
  Company Number: JP-ONO-2024JP016596

PATIENT
  Age: 74 Year
  Sex: Male
  Weight: 47 kg

DRUGS (3)
  1. OPDIVO [Suspect]
     Active Substance: NIVOLUMAB
     Indication: Squamous cell carcinoma of lung
     Dosage: 360 MG
     Route: 041
  2. CARBOPLATIN [Concomitant]
     Active Substance: CARBOPLATIN
     Indication: Squamous cell carcinoma of lung
     Dosage: AUC 6
  3. PACLITAXEL [Concomitant]
     Active Substance: PACLITAXEL
     Indication: Squamous cell carcinoma of lung
     Dosage: 200 MG/M2

REACTIONS (8)
  - Stevens-Johnson syndrome [Unknown]
  - Immune-mediated hypothyroidism [Unknown]
  - Hyponatraemia [Unknown]
  - Pruritus [Unknown]
  - Rash [Unknown]
  - Malaise [Unknown]
  - Eastern Cooperative Oncology Group performance status worsened [Recovered/Resolved]
  - Thyroiditis [Unknown]
